FAERS Safety Report 6051851-1 (Version None)
Quarter: 2009Q1

REPORT INFORMATION
  Report Type: 
  Country: None (occurrence: None)
  Receive Date: 20090126
  Receipt Date: 20090112
  Transmission Date: 20090719
  Serious: Yes (Death, Other)
  Sender: FDA-Public Use
  Company Number: US-ROCHE-607764

PATIENT
  Age: 55 Year
  Sex: Male

DRUGS (8)
  1. DIAZEPAM [Suspect]
     Indication: DRUG USE FOR UNKNOWN INDICATION
     Dosage: OVERDOSE
     Route: 065
  2. DIAZEPAM [Suspect]
     Route: 065
  3. METHADONE HCL [Suspect]
     Indication: DRUG USE FOR UNKNOWN INDICATION
     Dosage: OVERDOSE.
     Route: 065
  4. METHADONE HCL [Suspect]
     Route: 065
  5. SERTRALINE [Suspect]
     Indication: DRUG USE FOR UNKNOWN INDICATION
     Dosage: OVERDOSE.
     Route: 065
  6. SERTRALINE [Suspect]
     Route: 065
  7. TRAMADOL HCL [Suspect]
     Indication: DRUG USE FOR UNKNOWN INDICATION
     Dosage: OVERDOSE.
     Route: 065
  8. TRAMADOL HCL [Suspect]
     Route: 065

REACTIONS (9)
  - CARDIAC ARREST [None]
  - CARDIOMEGALY [None]
  - COMPLETED SUICIDE [None]
  - DRUG TOXICITY [None]
  - LEFT VENTRICULAR HYPERTROPHY [None]
  - MULTIPLE DRUG OVERDOSE INTENTIONAL [None]
  - PULMONARY CONGESTION [None]
  - PULMONARY OEDEMA [None]
  - RESPIRATORY ARREST [None]
